FAERS Safety Report 12990001 (Version 5)
Quarter: 2019Q2

REPORT INFORMATION
  Report Type: Report from Study
  Country: BR (occurrence: BR)
  Receive Date: 20161201
  Receipt Date: 20190619
  Transmission Date: 20190711
  Serious: Yes (Hospitalization, Other)
  Sender: FDA-Public Use
  Company Number: PHHY2015BR120050

PATIENT
  Sex: Male
  Weight: 72 kg

DRUGS (3)
  1. SANDOSTATIN LAR DEPOT [Suspect]
     Active Substance: OCTREOTIDE ACETATE
     Indication: ACROMEGALY
     Dosage: 20 MG, QMO (EVERY 28 DAYS ON AVERAGE)
     Route: 030
     Dates: start: 1995
  2. SANDOSTATIN [Suspect]
     Active Substance: OCTREOTIDE ACETATE
     Indication: ACROMEGALY
     Dosage: UNK MG, UNK
     Route: 065
     Dates: start: 1993
  3. DURATESTON [Concomitant]
     Active Substance: TESTOSTERONE
     Indication: PRODUCT USED FOR UNKNOWN INDICATION
     Dosage: 1 MG, QD
     Route: 065
     Dates: start: 1996

REACTIONS (21)
  - Disease progression [Unknown]
  - Chest discomfort [Unknown]
  - Bone disorder [Unknown]
  - Needle issue [Unknown]
  - Asthenia [Unknown]
  - General physical health deterioration [Unknown]
  - Psychiatric symptom [Unknown]
  - Memory impairment [Unknown]
  - Acromegaly [Unknown]
  - Arthralgia [Unknown]
  - Chest pain [Unknown]
  - Lethargy [Unknown]
  - Cardiac arrest [Unknown]
  - Fatigue [Unknown]
  - Dry skin [Unknown]
  - Weight decreased [Unknown]
  - Thyroid disorder [Unknown]
  - Hormone level abnormal [Unknown]
  - Somnolence [Unknown]
  - Decreased appetite [Unknown]
  - Swelling [Unknown]
